FAERS Safety Report 4791237-0 (Version None)
Quarter: 2005Q4

REPORT INFORMATION
  Report Type: 
  Country: None (occurrence: None)
  Receive Date: 20051005
  Receipt Date: 20050920
  Transmission Date: 20060501
  Serious: Yes (Other)
  Sender: FDA-Public Use
  Company Number: 200508327

PATIENT
  Sex: Female

DRUGS (1)
  1. BOTOX [Suspect]
     Indication: TORTICOLLIS
     Dosage: 80 UNITS ONCE IM
     Route: 030
     Dates: start: 20050427, end: 20050427

REACTIONS (2)
  - DRUG INEFFECTIVE [None]
  - EPILEPSY [None]
